FAERS Safety Report 24415337 (Version 1)
Quarter: 2024Q4

REPORT INFORMATION
  Report Type: Spontaneous
  Country: FI (occurrence: FI)
  Receive Date: 20241009
  Receipt Date: 20241009
  Transmission Date: 20250114
  Serious: Yes (Other)
  Sender: AMGEN
  Company Number: FI-ABBVIE-5935768

PATIENT
  Age: 29 Year
  Sex: Female

DRUGS (1)
  1. ADALIMUMAB [Suspect]
     Active Substance: ADALIMUMAB
     Indication: Product used for unknown indication
     Dosage: UNK
     Route: 058

REACTIONS (3)
  - Large intestinal ulcer [Unknown]
  - Abdominal pain [Recovered/Resolved]
  - Faecal calprotectin decreased [Unknown]

NARRATIVE: CASE EVENT DATE: 20230901
